FAERS Safety Report 11675638 (Version 2)
Quarter: 2016Q1

REPORT INFORMATION
  Report Type: Report from Study
  Country: FR (occurrence: FR)
  Receive Date: 20151028
  Receipt Date: 20160222
  Transmission Date: 20160525
  Serious: Yes (Other)
  Sender: FDA-Public Use
  Company Number: FR-009507513-1510FRA009483

PATIENT
  Age: 7 Year
  Sex: Female

DRUGS (8)
  1. ZOPHREN (ONDANSETRON) [Concomitant]
     Active Substance: ONDANSETRON
  2. NUBAIN [Concomitant]
     Active Substance: NALBUPHINE HYDROCHLORIDE
     Dosage: UNK
     Dates: end: 2013
  3. SODIUM BICARBONATE. [Concomitant]
     Active Substance: SODIUM BICARBONATE
     Dosage: UNK
     Dates: start: 20140407
  4. ACETAMINOPHEN. [Concomitant]
     Active Substance: ACETAMINOPHEN
     Route: 048
  5. KEPPRA [Concomitant]
     Active Substance: LEVETIRACETAM
     Dosage: UNKNOWN
     Dates: start: 20131130
  6. BACTRIM [Concomitant]
     Active Substance: SULFAMETHOXAZOLE\TRIMETHOPRIM
     Dosage: UNK
     Dates: start: 20140106
  7. TEMOZOLOMIDE. [Suspect]
     Active Substance: TEMOZOLOMIDE
     Indication: BRAIN NEOPLASM MALIGNANT
     Dosage: TOTAL DAILY DOSE: 110 MG, CYCLE 1
     Route: 042
     Dates: start: 20140317, end: 20140321
  8. TEMOZOLOMIDE. [Suspect]
     Active Substance: TEMOZOLOMIDE
     Dosage: TOTAL DAILY DOSE: 120 MG.  CYCLE 12
     Route: 042
     Dates: start: 20150206, end: 20150210

REACTIONS (2)
  - Precocious puberty [Not Recovered/Not Resolved]
  - Haematotoxicity [Unknown]

NARRATIVE: CASE EVENT DATE: 20150916
